FAERS Safety Report 14067018 (Version 1)
Quarter: 2017Q4

REPORT INFORMATION
  Report Type: Spontaneous
  Country: US (occurrence: US)
  Receive Date: 20171007
  Receipt Date: 20171007
  Transmission Date: 20180321
  Serious: Yes (Other)
  Sender: FDA-Public Use
  Company Number: None

PATIENT
  Age: 39 Year
  Sex: Female
  Weight: 83.25 kg

DRUGS (10)
  1. CALCIUM SUPPLEMENT [Concomitant]
     Active Substance: CALCIUM
  2. TRINTELLIX [Suspect]
     Active Substance: VORTIOXETINE HYDROBROMIDE
  3. OMEGA 3 [Concomitant]
     Active Substance: OMEGA-3 FATTY ACIDS
  4. VITAMIN D3/K2 [Concomitant]
  5. LIVE PROBIOTICS FOR GUT HEALTH [Concomitant]
  6. AMBIEN [Suspect]
     Active Substance: ZOLPIDEM TARTRATE
  7. WELLBUTRIN XL [Suspect]
     Active Substance: BUPROPION HYDROCHLORIDE
  8. KLONOPIN [Suspect]
     Active Substance: CLONAZEPAM
  9. BARIATRIC FUSION [Concomitant]
  10. INVEGA [Suspect]
     Active Substance: PALIPERIDONE
     Indication: EMOTIONAL DISORDER
     Route: 048
     Dates: end: 20170815

REACTIONS (5)
  - Feeling abnormal [None]
  - Tremor [None]
  - Insomnia [None]
  - Blood pressure increased [None]
  - Quality of life decreased [None]

NARRATIVE: CASE EVENT DATE: 20170920
